FAERS Safety Report 20811914 (Version 2)
Quarter: 2022Q2

REPORT INFORMATION
  Report Type: Report from Study
  Country: BR (occurrence: BR)
  Receive Date: 20220511
  Receipt Date: 20220627
  Transmission Date: 20220720
  Serious: Yes (Other)
  Sender: FDA-Public Use
  Company Number: BR-ABBOTT-2022A-1348478

PATIENT
  Sex: Female

DRUGS (2)
  1. SYNTHROID [Suspect]
     Active Substance: LEVOTHYROXINE SODIUM
     Indication: Thyroid disorder
     Dosage: STARTED 15 YEARS AGO, ONGOING, USES ONCE A DAY
     Route: 048
     Dates: start: 2007
  2. SYNTHROID [Suspect]
     Active Substance: LEVOTHYROXINE SODIUM
     Dosage: FORM STRENGTH 100MCG
     Route: 048

REACTIONS (2)
  - Benign gastric neoplasm [Recovered/Resolved]
  - Weight decreased [Unknown]
